FAERS Safety Report 9153444 (Version 1)
Quarter: 2013Q1

REPORT INFORMATION
  Report Type: Spontaneous
  Country: US (occurrence: None)
  Receive Date: 20130204
  Receipt Date: 20130204
  Transmission Date: 20140127
  Serious: Yes (Other)
  Sender: FDA-Public Use
  Company Number: FRA-CLT-2013002

PATIENT
  Age: 12 Year
  Sex: Male

DRUGS (5)
  1. CYSTADANE [Suspect]
     Indication: HOMOCYSTINURIA
     Route: 004
     Dates: start: 20000827
  2. FOLINIC ACID (FOLINIC ACID) [Concomitant]
  3. CARNITINE (CARNITINE) [Concomitant]
  4. VITAMIN B12 (VITAMIN B12) [Concomitant]
  5. VITAMIN B12 (VITAMIN B12) [Concomitant]

REACTIONS (1)
  - Periventricular leukomalacia [None]
